FAERS Safety Report 6745400-X (Version None)
Quarter: 2010Q2

REPORT INFORMATION
  Report Type: 
  Country: None (occurrence: None)
  Receive Date: 20100528
  Receipt Date: 20100519
  Transmission Date: 20101027
  Serious: No
  Sender: FDA-Public Use
  Company Number: 2010BI006040

PATIENT
  Sex: Female

DRUGS (1)
  1. TYSABRI [Suspect]
     Indication: MULTIPLE SCLEROSIS
     Route: 042
     Dates: start: 20080528

REACTIONS (7)
  - AMNESIA [None]
  - DIZZINESS [None]
  - EAR DISCOMFORT [None]
  - MALAISE [None]
  - UPPER RESPIRATORY TRACT CONGESTION [None]
  - VERTIGO [None]
  - VISION BLURRED [None]
